FAERS Safety Report 4391922-9 (Version None)
Quarter: 2004Q3

REPORT INFORMATION
  Report Type: 
  Country: None (occurrence: None)
  Receive Date: 20040701
  Receipt Date: 20040611
  Transmission Date: 20050211
  Serious: Yes (Other)
  Sender: FDA-Public Use
  Company Number: USA040363003

PATIENT
  Age: 76 Year
  Sex: Female

DRUGS (1)
  1. HUMALOG [Suspect]

REACTIONS (4)
  - CEREBROVASCULAR ACCIDENT [None]
  - GLAUCOMA [None]
  - THYROID DISORDER [None]
  - VISUAL DISTURBANCE [None]
